FAERS Safety Report 7115502-7 (Version None)
Quarter: 2010Q4

REPORT INFORMATION
  Report Type: 
  Country: None (occurrence: None)
  Receive Date: 20101122
  Receipt Date: 20100521
  Transmission Date: 20110411
  Serious: No
  Sender: FDA-Public Use
  Company Number: US-BAYER-201024146NA

PATIENT
  Sex: Female

DRUGS (1)
  1. CLIMARA PRO [Suspect]
     Indication: PRODUCT USED FOR UNKNOWN INDICATION
     Dosage: PROBLEMS TO KEEP HER PATCHES IN PLACE
     Route: 062

REACTIONS (3)
  - HEART RATE INCREASED [None]
  - HOT FLUSH [None]
  - MUSCLE SPASMS [None]
